FAERS Safety Report 19929671 (Version 1)
Quarter: 2021Q4

REPORT INFORMATION
  Report Type: Spontaneous
  Country: US (occurrence: US)
  Receive Date: 20211007
  Receipt Date: 20211007
  Transmission Date: 20220303
  Serious: No
  Sender: FDA-Public Use
  Company Number: US-BIODELIVERY SCIENCES INTERNATIONAL-2021BDSI0433

PATIENT
  Age: 74 Year
  Sex: Female

DRUGS (3)
  1. BUPRENORPHINE [Suspect]
     Active Substance: BUPRENORPHINE
     Indication: Pain
     Dosage: HALF OF 75 MCG FILM; ONCE A DAY
     Route: 002
     Dates: start: 20210909, end: 20210909
  2. BUPRENORPHINE [Suspect]
     Active Substance: BUPRENORPHINE
     Route: 002
     Dates: start: 20210910, end: 20210915
  3. BUPRENORPHINE [Suspect]
     Active Substance: BUPRENORPHINE
     Dosage: TWO 75 MCG FILMS AT THE SAME TIME ON EACH CHEEK; TAKEN ONCE IN A DAY
     Route: 002
     Dates: start: 20210916

REACTIONS (8)
  - Wrong technique in product usage process [Unknown]
  - Drug ineffective [Unknown]
  - Product prescribing error [Unknown]
  - Nausea [Recovering/Resolving]
  - Abdominal discomfort [Not Recovered/Not Resolved]
  - Therapeutic response decreased [Unknown]
  - Wrong technique in product usage process [Unknown]
  - Product solubility abnormal [Unknown]

NARRATIVE: CASE EVENT DATE: 20210901
